FAERS Safety Report 20997508 (Version 2)
Quarter: 2022Q2

REPORT INFORMATION
  Report Type: Report from Study
  Country: CZ (occurrence: CZ)
  Receive Date: 20220623
  Receipt Date: 20220629
  Transmission Date: 20220721
  Serious: No
  Sender: FDA-Public Use
  Company Number: CZ-TAKEDA-CZ201709145

PATIENT
  Age: 12 Year
  Sex: Male
  Weight: 46 kg

DRUGS (16)
  1. IDURSULFASE [Suspect]
     Active Substance: IDURSULFASE
     Indication: Mucopolysaccharidosis II
     Dosage: 0.5 MILLIGRAM/KILOGRAM, 1/WEEK
     Route: 042
     Dates: start: 20061120
  2. IDURSULFASE [Suspect]
     Active Substance: IDURSULFASE
     Dosage: 0.34 MILLIGRAM/KILOGRAM, 1/WEEK
     Route: 042
     Dates: start: 20130913, end: 20180405
  3. RISPERIDONE [Concomitant]
     Active Substance: RISPERIDONE
     Indication: Behaviour disorder
     Dosage: UNK
     Route: 048
     Dates: end: 20180410
  4. FENOTEROL HYDROBROMIDE\IPRATROPIUM BROMIDE [Concomitant]
     Active Substance: FENOTEROL HYDROBROMIDE\IPRATROPIUM BROMIDE
     Indication: Dyspnoea
     Dosage: UNK
     Route: 050
     Dates: end: 20180410
  5. MONTELUKAST SODIUM [Concomitant]
     Active Substance: MONTELUKAST SODIUM
     Indication: Dyspnoea
     Dosage: UNK
     Route: 048
     Dates: end: 20180410
  6. SALMETEROL [Concomitant]
     Active Substance: SALMETEROL
     Indication: Obstructive airways disorder
     Dosage: UNK
     Route: 050
     Dates: start: 200808, end: 20180410
  7. XYZAL [Concomitant]
     Active Substance: LEVOCETIRIZINE DIHYDROCHLORIDE
     Indication: Respiratory disorder
     Dosage: UNK
     Route: 048
     Dates: start: 2016, end: 20180410
  8. AUGMENTIN [Concomitant]
     Active Substance: AMOXICILLIN\CLAVULANATE POTASSIUM
     Indication: Pneumonia
     Dosage: UNK
     Route: 048
     Dates: start: 201603, end: 20160323
  9. FLUTICASONE PROPIONATE\FORMOTEROL FUMARATE [Concomitant]
     Active Substance: FLUTICASONE PROPIONATE\FORMOTEROL FUMARATE
     Indication: Lung disorder
     Dosage: UNK
     Route: 050
     Dates: start: 20161013, end: 20180410
  10. SPIRIVA [Concomitant]
     Active Substance: TIOTROPIUM BROMIDE MONOHYDRATE
     Indication: Lung disorder
     Dosage: UNK
     Route: 050
     Dates: start: 20161013
  11. EGILOC [Concomitant]
     Dosage: UNK
     Route: 065
     Dates: start: 2017, end: 20180410
  12. METOCLOPRAMIDE HYDROCHLORIDE [Concomitant]
     Active Substance: METOCLOPRAMIDE HYDROCHLORIDE
     Dosage: UNK
     Route: 065
     Dates: start: 2017, end: 20180410
  13. OMEPRAZOLE [Concomitant]
     Active Substance: OMEPRAZOLE
     Dosage: UNK
     Route: 065
     Dates: start: 2017, end: 20180410
  14. ACETYLCYSTEINE [Concomitant]
     Active Substance: ACETYLCYSTEINE
     Dosage: UNK
     Route: 065
     Dates: start: 2017, end: 20180410
  15. ZOLOFT [Concomitant]
     Active Substance: SERTRALINE HYDROCHLORIDE
     Dosage: UNK
     Route: 065
     Dates: start: 2017, end: 20180410
  16. NADROPARIN CALCIUM [Concomitant]
     Active Substance: NADROPARIN CALCIUM
     Indication: Anticoagulant therapy
     Dosage: UNK
     Route: 058
     Dates: start: 2018, end: 20180410

REACTIONS (1)
  - Blount^s disease [Recovered/Resolved]

NARRATIVE: CASE EVENT DATE: 20100915
